FAERS Safety Report 4974954-9 (Version None)
Quarter: 2006Q2

REPORT INFORMATION
  Report Type: 
  Country: None (occurrence: None)
  Receive Date: 20060418
  Receipt Date: 20060403
  Transmission Date: 20061013
  Serious: Yes (Hospitalization)
  Sender: FDA-Public Use
  Company Number: GB-AMGEN-UK174957

PATIENT
  Age: 52 Year
  Sex: Male

DRUGS (14)
  1. NEULASTA [Suspect]
     Indication: NON-HODGKIN'S LYMPHOMA
     Route: 058
  2. DOXORUBICIN HCL [Suspect]
  3. CYCLOPHOSPHAMIDE [Suspect]
  4. VINCRISTINE [Suspect]
  5. RITUXIMAB [Suspect]
  6. PREDNISOLONE [Suspect]
  7. CARBAMAZEPINE [Concomitant]
  8. OMEPRAZOLE [Concomitant]
  9. PRAVASTATIN [Concomitant]
  10. METOPROLOL [Concomitant]
  11. FRUSEMIDE [Concomitant]
  12. SPIRONOLACTONE [Concomitant]
  13. WARFARIN [Concomitant]
  14. THYROXINE [Concomitant]

REACTIONS (3)
  - CRYPTOGENIC ORGANIZING PNEUMONIA [None]
  - HYPOXIA [None]
  - NEUTROPENIA [None]
